FAERS Safety Report 21953650 (Version 1)
Quarter: 2023Q1

REPORT INFORMATION
  Report Type: Report from Study
  Country: PH (occurrence: PH)
  Receive Date: 20230204
  Receipt Date: 20230204
  Transmission Date: 20230417
  Serious: Yes (Other)
  Sender: FDA-Public Use
  Company Number: PH-002147023-NVSC2023PH024514

PATIENT
  Age: 31 Year
  Sex: Female

DRUGS (2)
  1. TASIGNA [Suspect]
     Active Substance: NILOTINIB
     Indication: Product used for unknown indication
     Dosage: 300 MG, TID (2 MONTHS)
     Route: 065
  2. TASIGNA [Suspect]
     Active Substance: NILOTINIB
     Dosage: 150 MG, Q12H (2 CAPSULES)
     Route: 048
     Dates: start: 20220119

REACTIONS (2)
  - Splenomegaly [Unknown]
  - Leukocytosis [Unknown]

NARRATIVE: CASE EVENT DATE: 20200101
